FAERS Safety Report 4595027-3 (Version None)
Quarter: 2005Q1

REPORT INFORMATION
  Report Type: 
  Country: None (occurrence: None)
  Receive Date: 20050225
  Receipt Date: 20050208
  Transmission Date: 20050727
  Serious: Yes (Other)
  Sender: FDA-Public Use
  Company Number: 702348

PATIENT
  Age: 75 Year
  Sex: Female

DRUGS (9)
  1. AMEVIVE [Suspect]
     Indication: PSORIASIS
     Dosage: 15 MG;QW;IM
     Route: 030
     Dates: start: 20040622, end: 20040907
  2. ATENOLOL [Concomitant]
  3. HYDROCHLOROTHIAZIDE [Concomitant]
  4. ALLOPURINOL [Concomitant]
  5. ACTOS [Concomitant]
  6. AMARYL [Concomitant]
  7. ATACAND [Concomitant]
  8. LIPITOR [Concomitant]
  9. METFORMIN [Concomitant]

REACTIONS (1)
  - B-CELL LYMPHOMA STAGE I [None]
